FAERS Safety Report 10479735 (Version 2)
Quarter: 2014Q3

REPORT INFORMATION
  Report Type: Spontaneous
  Country: GB (occurrence: None)
  Receive Date: 20140925
  Receipt Date: 20140925
  Transmission Date: 20150326
  Serious: Yes (Death, Other)
  Sender: FDA-Public Use
  Company Number: KAD201409-001095

PATIENT
  Age: 49 Year
  Sex: Male
  Weight: 90 kg

DRUGS (3)
  1. VIRAFERONPEG [Suspect]
     Active Substance: PEGINTERFERON ALFA-2B
     Indication: HEPATITIS C
     Dosage: 150 PER WEEK, SUBCUTANEOUS
     Route: 058
     Dates: start: 20140302
  2. INCIVO [Suspect]
     Active Substance: TELAPREVIR
     Route: 048
     Dates: start: 20140302
  3. RIBAVIRIN. [Suspect]
     Active Substance: RIBAVIRIN
     Indication: HEPATITIS C
     Dosage: 400 MG A.M - 600 MG P.M., 1000 MG DAILY (400 MG AM, 600 MG PM), ORAL
     Route: 048
     Dates: start: 20140303

REACTIONS (4)
  - Pneumonia [None]
  - Sudden death [None]
  - Arrhythmia [None]
  - Pneumonia haemophilus [None]

NARRATIVE: CASE EVENT DATE: 20140521
